FAERS Safety Report 7826271-7 (Version None)
Quarter: 2011Q4

REPORT INFORMATION
  Report Type: 
  Country: None (occurrence: None)
  Receive Date: 20111020
  Receipt Date: 20111012
  Transmission Date: 20120403
  Serious: No
  Sender: FDA-Public Use
  Company Number: US-BIOGENIDEC-2011BI030054

PATIENT
  Age: 26 Year
  Sex: Female

DRUGS (1)
  1. TYSABRI [Suspect]
     Indication: MULTIPLE SCLEROSIS
     Route: 042
     Dates: start: 20110804

REACTIONS (15)
  - BURNING SENSATION [None]
  - SPEECH DISORDER [None]
  - PARAESTHESIA ORAL [None]
  - FATIGUE [None]
  - PYREXIA [None]
  - BALANCE DISORDER [None]
  - INCOHERENT [None]
  - TREMOR [None]
  - HEADACHE [None]
  - DYSPHONIA [None]
  - ASTHENIA [None]
  - PAIN [None]
  - VISION BLURRED [None]
  - MUSCULOSKELETAL STIFFNESS [None]
  - MUSCLE SPASMS [None]
